FAERS Safety Report 8413762-3 (Version None)
Quarter: 2012Q2

REPORT INFORMATION
  Report Type: 
  Country: None (occurrence: None)
  Receive Date: 20120605
  Receipt Date: 20120521
  Transmission Date: 20120825
  Serious: Yes (Hospitalization, Other)
  Sender: FDA-Public Use
  Company Number: TR-WATSON-2011A-01221

PATIENT
  Age: 33 Year
  Sex: Female

DRUGS (4)
  1. FLUOXETINE HCL [Suspect]
     Route: 065
  2. FLUOXETINE HCL [Suspect]
     Route: 065
  3. FLUOXETINE HCL [Suspect]
     Indication: DEPRESSION
     Route: 065
  4. FLUOXETINE HCL [Suspect]
     Route: 065

REACTIONS (2)
  - MULTIPLE FRACTURES [None]
  - GENE MUTATION [None]
